FAERS Safety Report 7979469-1 (Version None)
Quarter: 2011Q4

REPORT INFORMATION
  Report Type: 
  Country: None (occurrence: None)
  Receive Date: 20111214
  Receipt Date: 20111213
  Transmission Date: 20120403
  Serious: Yes (Death, Other)
  Sender: FDA-Public Use
  Company Number: PHHY2009MX69429

PATIENT
  Age: 81 Year
  Sex: Female

DRUGS (1)
  1. STALEVO 100 [Suspect]
     Dosage: 1 TABLET (200/100/25 MG) PER DAY
     Route: 048

REACTIONS (2)
  - CARDIAC ARREST [None]
  - COAGULATION FACTOR DECREASED [None]
